FAERS Safety Report 15748475 (Version 1)
Quarter: 2018Q4

REPORT INFORMATION
  Report Type: Spontaneous
  Country: DE (occurrence: DE)
  Receive Date: 20181221
  Receipt Date: 20181221
  Transmission Date: 20190205
  Serious: Yes (Other)
  Sender: FDA-Public Use
  Company Number: DE-TEVA-2018-DE-988790

PATIENT
  Age: 82 Year
  Sex: Male

DRUGS (3)
  1. ATORVASTATIN-RATIOPHARM 10 MG FILMTABLETTEN [Suspect]
     Active Substance: ATORVASTATIN
     Indication: ARTERIOSCLEROSIS
  2. ATORVASTATIN-RATIOPHARM 10 MG FILMTABLETTEN [Suspect]
     Active Substance: ATORVASTATIN
     Indication: CARDIOVASCULAR EVENT PROPHYLAXIS
  3. ATORVASTATIN-RATIOPHARM 10 MG FILMTABLETTEN [Suspect]
     Active Substance: ATORVASTATIN
     Indication: PRESYNCOPE
     Route: 048
     Dates: start: 201806

REACTIONS (2)
  - Visual impairment [Not Recovered/Not Resolved]
  - Neovascular age-related macular degeneration [Not Recovered/Not Resolved]

NARRATIVE: CASE EVENT DATE: 2018
